FAERS Safety Report 5524914-4 (Version None)
Quarter: 2007Q4

REPORT INFORMATION
  Report Type: 
  Country: None (occurrence: None)
  Receive Date: 20071119
  Receipt Date: 20071107
  Transmission Date: 20080405
  Serious: Yes (Death)
  Sender: FDA-Public Use
  Company Number: A-US2007-17756

PATIENT
  Age: 75 Year
  Sex: Female

DRUGS (1)
  1. TRACLEER(BOSENTAN TABLET UKNOWN US MG)(BOSENTAN) TABLET [Suspect]
     Indication: PULMONARY HYPERTENSION
     Dosage: ORAL
     Route: 048

REACTIONS (3)
  - CARDIAC FAILURE CONGESTIVE [None]
  - DIABETES MELLITUS [None]
  - LIVER FUNCTION TEST ABNORMAL [None]
